FAERS Safety Report 7500455-X (Version None)
Quarter: 2011Q2

REPORT INFORMATION
  Report Type: 
  Country: None (occurrence: None)
  Receive Date: 20110524
  Receipt Date: 20110426
  Transmission Date: 20111010
  Serious: No
  Sender: FDA-Public Use
  Company Number: US-BRISTOL-MYERS SQUIBB COMPANY-15645286

PATIENT
  Age: 71 Year
  Sex: Female

DRUGS (2)
  1. GLIPIZIDE [Suspect]
  2. ONGLYZA [Suspect]

REACTIONS (1)
  - DRUG INEFFECTIVE [None]
